FAERS Safety Report 20042541 (Version 2)
Quarter: 2021Q4

REPORT INFORMATION
  Report Type: Spontaneous
  Country: US (occurrence: US)
  Receive Date: 20211108
  Receipt Date: 20211117
  Transmission Date: 20220303
  Serious: Yes (Other)
  Sender: FDA-Public Use
  Company Number: US-SANOFI-00837094

PATIENT
  Age: 84 Year
  Sex: Female

DRUGS (16)
  1. DUPIXENT [Suspect]
     Active Substance: DUPILUMAB
     Indication: Asthma
     Dosage: UNK UNK, 1X
     Dates: start: 202108, end: 202108
  2. DUPIXENT [Suspect]
     Active Substance: DUPILUMAB
     Dosage: 300 MG, QOW
  3. DUPIXENT [Suspect]
     Active Substance: DUPILUMAB
     Dosage: 300 MG, SHE IS SUPPOSED TO TAKE IT Q 2 WEEKS, BUT SOMETIMES IT IS LONGER THAN 2 WEEKS BETWEEN DOSES
  4. BUDESONIDE\FORMOTEROL [Concomitant]
     Active Substance: BUDESONIDE\FORMOTEROL
  5. ALBUTEROL SULFATE [Concomitant]
     Active Substance: ALBUTEROL SULFATE
  6. ESZOPICLONE [Concomitant]
     Active Substance: ESZOPICLONE
  7. VALSARTAN [Concomitant]
     Active Substance: VALSARTAN
  8. ARMOUR THYROID [Concomitant]
     Active Substance: THYROID, PORCINE
  9. HYDROCHLOROTHIAZIDE [Concomitant]
     Active Substance: HYDROCHLOROTHIAZIDE
  10. PREDNISONE [Concomitant]
     Active Substance: PREDNISONE
  11. MELOXICAM [Concomitant]
     Active Substance: MELOXICAM
  12. MONTELUKAST SODIUM [Concomitant]
     Active Substance: MONTELUKAST SODIUM
  13. CICLOPIROX [Concomitant]
     Active Substance: CICLOPIROX
  14. EPINEPHRINE [Concomitant]
     Active Substance: EPINEPHRINE
  15. CLINDAMYCIN HYDROCHLORIDE [Concomitant]
     Active Substance: CLINDAMYCIN HYDROCHLORIDE
  16. XOLAIR [Concomitant]
     Active Substance: OMALIZUMAB

REACTIONS (2)
  - Skin cancer [Not Recovered/Not Resolved]
  - Product use issue [Unknown]

NARRATIVE: CASE EVENT DATE: 20210101
